FAERS Safety Report 26031684 (Version 1)
Quarter: 2025Q4

REPORT INFORMATION
  Report Type: Spontaneous
  Country: US (occurrence: US)
  Receive Date: 20251112
  Receipt Date: 20251112
  Transmission Date: 20260118
  Serious: No
  Sender: BIOGEN
  Company Number: US-BIOGEN-2090210

PATIENT
  Age: 54 Year

DRUGS (1)
  1. VUMERITY [Suspect]
     Active Substance: DIROXIMEL FUMARATE
     Indication: Multiple sclerosis

REACTIONS (2)
  - Aphasia [Unknown]
  - Agraphia [Unknown]

NARRATIVE: CASE EVENT DATE: 20251103
